FAERS Safety Report 8435536-X (Version None)
Quarter: 2012Q2

REPORT INFORMATION
  Report Type: 
  Country: None (occurrence: None)
  Receive Date: 20120614
  Receipt Date: 20120605
  Transmission Date: 20120825
  Serious: Yes (Other)
  Sender: FDA-Public Use
  Company Number: JP-VERTEX PHARMACEUTICALS INC.-AE-2012-005076

PATIENT
  Age: 62 Year
  Sex: Male

DRUGS (17)
  1. REBETOL [Concomitant]
     Indication: HEPATITIS C
     Route: 048
     Dates: start: 20120207, end: 20120226
  2. REBETOL [Concomitant]
     Route: 048
     Dates: start: 20120328, end: 20120403
  3. TELAVIC (TELAPREVIR) [Suspect]
     Indication: HEPATITIS C
     Route: 048
     Dates: start: 20120207, end: 20120403
  4. PEG-INTRON [Concomitant]
     Indication: HEPATITIS C
     Route: 051
     Dates: start: 20120207, end: 20120226
  5. PEG-INTRON [Concomitant]
     Route: 051
     Dates: start: 20120227, end: 20120313
  6. ALLOPURINOL [Concomitant]
     Route: 048
     Dates: start: 20120220
  7. REBETOL [Concomitant]
     Route: 048
     Dates: start: 20120411
  8. FAMOTIDINE [Concomitant]
     Route: 048
     Dates: start: 20120207
  9. TELAVIC (TELAPREVIR) [Suspect]
     Route: 048
     Dates: start: 20120418, end: 20120424
  10. TELAVIC (TELAPREVIR) [Suspect]
     Route: 048
     Dates: start: 20120425, end: 20120501
  11. PEG-INTRON [Concomitant]
     Route: 051
     Dates: start: 20120328, end: 20120403
  12. PEG-INTRON [Concomitant]
     Route: 051
     Dates: start: 20120314, end: 20120320
  13. PEG-INTRON [Concomitant]
     Route: 051
     Dates: start: 20120321, end: 20120327
  14. PEG-INTRON [Concomitant]
     Route: 051
     Dates: start: 20120411
  15. REBETOL [Concomitant]
     Route: 048
     Dates: start: 20120227, end: 20120327
  16. CELESTAMINE TAB [Concomitant]
     Route: 048
     Dates: start: 20120207
  17. LOXONIN [Concomitant]
     Route: 048
     Dates: start: 20120207

REACTIONS (1)
  - DRUG ERUPTION [None]
